FAERS Safety Report 19920674 (Version 1)
Quarter: 2021Q4

REPORT INFORMATION
  Report Type: Spontaneous
  Country: US (occurrence: US)
  Receive Date: 20211005
  Receipt Date: 20211005
  Transmission Date: 20220303
  Serious: No
  Sender: FDA-Public Use
  Company Number: US-FRESENIUS KABI-FK202110595

PATIENT
  Sex: Female

DRUGS (1)
  1. MAGNESIUM SULFATE HEPTAHYDRATE [Suspect]
     Active Substance: MAGNESIUM SULFATE HEPTAHYDRATE
     Indication: Premature labour
     Dosage: 4 GRAM LOAD WITH 2 GRAM PER HOUR MAINTENANCE
     Route: 042

REACTIONS (3)
  - Intentional product use issue [Unknown]
  - Exposure during pregnancy [Unknown]
  - Therapeutic product effect decreased [Unknown]
